FAERS Safety Report 24704405 (Version 2)
Quarter: 2025Q1

REPORT INFORMATION
  Report Type: Spontaneous
  Country: US (occurrence: US)
  Receive Date: 20241206
  Receipt Date: 20250307
  Transmission Date: 20250408
  Serious: No
  Sender: SANOFI AVENTIS
  Company Number: US-SA-2024SA359469

PATIENT
  Age: 56 Year
  Sex: Male

DRUGS (1)
  1. DUPIXENT [Suspect]
     Active Substance: DUPILUMAB
     Indication: Dermatitis atopic
     Dosage: 300 MG, Q8W
     Route: 058
     Dates: start: 202002

REACTIONS (6)
  - Dermatitis atopic [Unknown]
  - Pruritus [Unknown]
  - Rash [Unknown]
  - Therapeutic response shortened [Unknown]
  - Pruritus [Unknown]
  - Inappropriate schedule of product administration [Unknown]

NARRATIVE: CASE EVENT DATE: 20250101
